FAERS Safety Report 7675611-0 (Version None)
Quarter: 2011Q3

REPORT INFORMATION
  Report Type: 
  Country: None (occurrence: None)
  Receive Date: 20110810
  Receipt Date: 20110802
  Transmission Date: 20111222
  Serious: Yes (Hospitalization)
  Sender: FDA-Public Use
  Company Number: US-CELGENEUS-163-21880-11080390

PATIENT
  Sex: Male
  Weight: 113.5 kg

DRUGS (8)
  1. REVLIMID [Suspect]
     Indication: MULTIPLE MYELOMA
     Dosage: 25 MILLIGRAM
     Route: 048
     Dates: start: 20110719
  2. LIPITOR [Concomitant]
     Route: 065
  3. AMLODIPINE/LISINOPRIL [Concomitant]
     Indication: HYPERTENSION
     Route: 065
  4. DEXAMETHASONE [Concomitant]
     Route: 065
     Dates: start: 20110720
  5. OXYCODONE HCL [Concomitant]
     Indication: PAIN
     Route: 065
  6. ASPIRIN [Concomitant]
     Route: 065
  7. JANUMET [Concomitant]
     Route: 065
  8. OMEPRAZOLE [Concomitant]
     Route: 065

REACTIONS (2)
  - ABDOMINAL PAIN UPPER [None]
  - BLOOD GLUCOSE INCREASED [None]
